FAERS Safety Report 23303291 (Version 1)
Quarter: 2023Q4

REPORT INFORMATION
  Report Type: Spontaneous
  Country: US (occurrence: US)
  Receive Date: 20231215
  Receipt Date: 20231215
  Transmission Date: 20240110
  Serious: No
  Sender: FDA-Public Use
  Company Number: US-APOTEX-2023AP016571

PATIENT
  Sex: Female

DRUGS (1)
  1. PAXIL [Suspect]
     Active Substance: PAROXETINE HYDROCHLORIDE
     Indication: Product used for unknown indication
     Dosage: UNK (STARTED AND STOPPED 20 YEARS AGO)
     Route: 065

REACTIONS (2)
  - Panic attack [Recovered/Resolved]
  - Hypersensitivity [Recovered/Resolved]
